FAERS Safety Report 5502362-0 (Version None)
Quarter: 2007Q4

REPORT INFORMATION
  Report Type: 
  Country: None (occurrence: None)
  Receive Date: 20071030
  Receipt Date: 20071018
  Transmission Date: 20080405
  Serious: Yes (Death)
  Sender: FDA-Public Use
  Company Number: US-PFIZER INC-2007088652

PATIENT
  Sex: Male

DRUGS (3)
  1. XANAX [Suspect]
     Route: 048
  2. MOGADON [Suspect]
     Route: 048
  3. PAROXETINE HCL [Concomitant]

REACTIONS (1)
  - INTENTIONAL OVERDOSE [None]
